FAERS Safety Report 6805668-8 (Version None)
Quarter: 2010Q2

REPORT INFORMATION
  Report Type: 
  Country: None (occurrence: None)
  Receive Date: 20100628
  Receipt Date: 20071229
  Transmission Date: 20101027
  Serious: No
  Sender: FDA-Public Use
  Company Number: US-PFIZER INC-2007083863

PATIENT
  Sex: Male
  Weight: 72.7 kg

DRUGS (4)
  1. GEODON [Suspect]
     Indication: GENERALISED ANXIETY DISORDER
     Dates: start: 20070901, end: 20071201
  2. PALIPERIDONE [Suspect]
     Indication: ARRHYTHMIA
  3. LEXAPRO [Suspect]
     Indication: DEPRESSION
     Route: 048
     Dates: start: 20060101
  4. TRAZODONE HYDROCHLORIDE [Concomitant]

REACTIONS (6)
  - ANXIETY [None]
  - ELECTROCARDIOGRAM QT PROLONGED [None]
  - PANIC REACTION [None]
  - SINUS ARRHYTHMIA [None]
  - TIC [None]
  - WOLFF-PARKINSON-WHITE SYNDROME [None]
